FAERS Safety Report 6273060-3 (Version None)
Quarter: 2009Q3

REPORT INFORMATION
  Report Type: 
  Country: None (occurrence: None)
  Receive Date: 20090715
  Receipt Date: 20090715
  Transmission Date: 20100115
  Serious: Yes (Disabling)
  Sender: FDA-Public Use
  Company Number: None

PATIENT
  Sex: Female
  Weight: 73.0291 kg

DRUGS (2)
  1. ZICAM GEL SWABS [Suspect]
     Indication: VIRAL INFECTION
     Dosage: 6 DOSES 3 X DAILY X 2 DAYS NASAL
     Route: 045
     Dates: start: 20080527
  2. ZICAM GEL SWABS [Suspect]
     Indication: VIRAL INFECTION
     Dosage: 6 DOSES 3 X DAILY X 2 DAYS NASAL
     Route: 045
     Dates: start: 20080528

REACTIONS (1)
  - ANOSMIA [None]
